FAERS Safety Report 4475134-6 (Version None)
Quarter: 2004Q4

REPORT INFORMATION
  Report Type: 
  Country: None (occurrence: None)
  Receive Date: 20041013
  Receipt Date: 20041013
  Transmission Date: 20050328
  Serious: Yes (Hospitalization)
  Sender: FDA-Public Use
  Company Number: None

PATIENT
  Age: 49 Year
  Sex: Female

DRUGS (11)
  1. CAMPTOSAR [Suspect]
     Indication: COLORECTAL CANCER METASTATIC
     Dosage: 100MG/M2 ON DAYS 1 AND 8 INTRAVENOU
     Route: 042
  2. NEURONTIN [Concomitant]
  3. XELODA [Concomitant]
  4. ATIVAN [Concomitant]
  5. ZOFRAN [Concomitant]
  6. LOPERAMIDE-IMODIUM [Concomitant]
  7. PROZAC [Concomitant]
  8. OXYCODONE [Concomitant]
  9. LAMICTAL [Concomitant]
  10. AMBIEN [Concomitant]
  11. TRIAMTERENE AND HYDROCHLOROTHIAZIDE [Concomitant]

REACTIONS (3)
  - ILEUS PARALYTIC [None]
  - MALIGNANT NEOPLASM PROGRESSION [None]
  - SMALL INTESTINAL OBSTRUCTION [None]
